FAERS Safety Report 23975716 (Version 1)
Quarter: 2024Q2

REPORT INFORMATION
  Report Type: Spontaneous
  Country: TW (occurrence: TW)
  Receive Date: 20240614
  Receipt Date: 20240614
  Transmission Date: 20240716
  Serious: Yes (Hospitalization, Other)
  Sender: FDA-Public Use
  Company Number: TW-UCBSA-2024029691

PATIENT
  Sex: Male

DRUGS (4)
  1. ROTIGOTINE [Suspect]
     Active Substance: ROTIGOTINE
     Indication: Parkinson^s disease
     Dosage: UNK
  2. LEVODOPA [Suspect]
     Active Substance: LEVODOPA
     Indication: Parkinson^s disease
     Dosage: UNK
  3. SELEGILINE [Suspect]
     Active Substance: SELEGILINE
     Indication: Parkinson^s disease
     Dosage: UNK
  4. ENTACAPONE [Suspect]
     Active Substance: ENTACAPONE
     Indication: Parkinson^s disease
     Dosage: UNK

REACTIONS (2)
  - Persecutory delusion [Unknown]
  - Parkinson^s disease [Recovering/Resolving]
